FAERS Safety Report 15144494 (Version 2)
Quarter: 2018Q4

REPORT INFORMATION
  Report Type: Spontaneous
  Country: US (occurrence: US)
  Receive Date: 20180713
  Receipt Date: 20181011
  Transmission Date: 20190204
  Serious: No
  Sender: FDA-Public Use
  Company Number: US-NOVOPROD-606502

PATIENT
  Age: 41 Year
  Sex: Female

DRUGS (1)
  1. FIASP [Suspect]
     Active Substance: INSULIN ASPART
     Indication: PRODUCT USED FOR UNKNOWN INDICATION
     Dosage: 0.6 UNITS/HR, 1:15 GRAMS + 1:50 IF HIGHER THAN 150 CORRECTION (ABOUT 30 UNITS/DAY)
     Route: 058
     Dates: start: 201803, end: 201804

REACTIONS (2)
  - Infusion site pain [Not Recovered/Not Resolved]
  - Off label use [Recovered/Resolved]

NARRATIVE: CASE EVENT DATE: 201803
